FAERS Safety Report 11679339 (Version 4)
Quarter: 2015Q4

REPORT INFORMATION
  Report Type: Report from Study
  Country: AU (occurrence: AU)
  Receive Date: 20151028
  Receipt Date: 20151217
  Transmission Date: 20160304
  Serious: Yes (Hospitalization, Other)
  Sender: FDA-Public Use
  Company Number: PHHO2015AU015202

PATIENT
  Age: 61 Year
  Sex: Male
  Weight: 82.3 kg

DRUGS (10)
  1. CLEXANE [Concomitant]
     Active Substance: ENOXAPARIN SODIUM
     Indication: THROMBOSIS PROPHYLAXIS
     Dosage: 40 MG, BID
     Route: 058
     Dates: start: 20150930, end: 20150930
  2. AMN107 [Suspect]
     Active Substance: NILOTINIB
     Indication: CHRONIC MYELOID LEUKAEMIA
     Dosage: 300 MG, BID  (MOST RECENT DOSE 450MG)
     Route: 048
     Dates: start: 20141112, end: 20150826
  3. AMN107 [Suspect]
     Active Substance: NILOTINIB
     Dosage: 450 MG, QD
     Route: 048
     Dates: end: 20151104
  4. PEGINTERFERON ALFA-2B [Suspect]
     Active Substance: PEGINTERFERON ALFA-2B
     Dosage: 50 MG, QW
     Route: 065
     Dates: end: 20151028
  5. LAMIVUDINE. [Concomitant]
     Active Substance: LAMIVUDINE
     Indication: ANTIVIRAL PROPHYLAXIS
     Dosage: 100 MG, QD
     Route: 048
     Dates: start: 20141204
  6. PANTOPRAZOLE [Concomitant]
     Active Substance: PANTOPRAZOLE SODIUM
     Indication: GASTROOESOPHAGEAL REFLUX DISEASE
     Dosage: 20 MG, QD
     Route: 048
     Dates: start: 20150910
  7. PEGINTERFERON ALFA-2B [Suspect]
     Active Substance: PEGINTERFERON ALFA-2B
     Indication: CHRONIC MYELOID LEUKAEMIA
     Dosage: 30 MG, QW  (MOST RECENT DOSE 50MG)
     Route: 065
     Dates: start: 20150401, end: 20150930
  8. LORATADINE. [Concomitant]
     Active Substance: LORATADINE
     Indication: DRUG ERUPTION
     Dosage: 10 MG, QD
     Route: 048
     Dates: start: 20150120
  9. CLEXANE [Concomitant]
     Active Substance: ENOXAPARIN SODIUM
     Dosage: 85 MG, BID
     Route: 058
     Dates: start: 20151001, end: 20151006
  10. AMN107 [Suspect]
     Active Substance: NILOTINIB
     Dosage: 450 MG, QD
     Route: 048
     Dates: end: 20151014

REACTIONS (4)
  - Hepatitis viral [Not Recovered/Not Resolved]
  - Atrial fibrillation [Recovered/Resolved]
  - Pneumonia [Recovered/Resolved]
  - Pleural effusion [Recovered/Resolved]

NARRATIVE: CASE EVENT DATE: 20150901
